FAERS Safety Report 10428822 (Version 5)
Quarter: 2014Q4

REPORT INFORMATION
  Report Type: Report from Study
  Country: GB (occurrence: GB)
  Receive Date: 20140904
  Receipt Date: 20141110
  Transmission Date: 20150528
  Serious: Yes (Other)
  Sender: FDA-Public Use
  Company Number: GB-ROCHE-1357452

PATIENT
  Sex: Female

DRUGS (1)
  1. HERCEPTIN [Suspect]
     Active Substance: TRASTUZUMAB
     Indication: PRODUCT USED FOR UNKNOWN INDICATION
     Route: 058

REACTIONS (18)
  - Insomnia [Unknown]
  - Dyspnoea exertional [Unknown]
  - Constipation [Unknown]
  - Fatigue [Unknown]
  - Nail disorder [Unknown]
  - Breast pain [Unknown]
  - Arthralgia [Unknown]
  - Neck pain [Unknown]
  - Decreased appetite [Unknown]
  - Pain in extremity [Unknown]
  - Asthenia [Unknown]
  - Rectal haemorrhage [Unknown]
  - Vomiting [Unknown]
  - Chest discomfort [Unknown]
  - Dyspnoea [Unknown]
  - Spinal pain [Unknown]
  - Back pain [Unknown]
  - Rhinorrhoea [Unknown]
